FAERS Safety Report 8523579-7 (Version None)
Quarter: 2012Q3

REPORT INFORMATION
  Report Type: 
  Country: None (occurrence: None)
  Receive Date: 20120716
  Receipt Date: 20120716
  Transmission Date: 20120928
  Serious: Yes (Other)
  Sender: FDA-Public Use
  Company Number: None

PATIENT
  Age: 82 Year
  Sex: Female
  Weight: 71.6683 kg

DRUGS (2)
  1. FOSAMAX [Suspect]
     Indication: SPINAL FRACTURE
     Dosage: 70 MG ONCE WEEKLY PO
     Route: 048
     Dates: start: 20120623, end: 20120623
  2. FOSAMAX [Suspect]
     Indication: OSTEOPOROSIS
     Dosage: 70 MG ONCE WEEKLY PO
     Route: 048
     Dates: start: 20120623, end: 20120623

REACTIONS (10)
  - OEDEMA PERIPHERAL [None]
  - FEELING ABNORMAL [None]
  - ARTHRALGIA [None]
  - ABASIA [None]
  - NECK PAIN [None]
  - FACIAL PAIN [None]
  - BONE PAIN [None]
  - JOINT SWELLING [None]
  - PAIN [None]
  - POISONING [None]
